FAERS Safety Report 8112299-9 (Version None)
Quarter: 2012Q1

REPORT INFORMATION
  Report Type: 
  Country: None (occurrence: None)
  Receive Date: 20120131
  Receipt Date: 20120118
  Transmission Date: 20120608
  Serious: Yes (Other)
  Sender: FDA-Public Use
  Company Number: USA/USA/12/0022796

PATIENT
  Age: 46 Year
  Sex: Male

DRUGS (1)
  1. IBUPROFEN [Suspect]
     Indication: PYREXIA

REACTIONS (14)
  - GASTRITIS [None]
  - BACTERAEMIA [None]
  - PORTAL VEIN PHLEBITIS [None]
  - BLOOD CULTURE POSITIVE [None]
  - PLATELET COUNT DECREASED [None]
  - BLOOD SODIUM DECREASED [None]
  - PORTAL VEIN THROMBOSIS [None]
  - SEPSIS [None]
  - EROSIVE OESOPHAGITIS [None]
  - MELAENA [None]
  - GASTROINTESTINAL HAEMORRHAGE [None]
  - ANAEMIA [None]
  - STREPTOCOCCAL INFECTION [None]
  - HYPOTENSION [None]
